FAERS Safety Report 18664912 (Version 2)
Quarter: 2020Q4

REPORT INFORMATION
  Report Type: Spontaneous
  Country: JP (occurrence: JP)
  Receive Date: 20201225
  Receipt Date: 20201228
  Transmission Date: 20210114
  Serious: Yes (Other)
  Sender: FDA-Public Use
  Company Number: JP-JNJFOC-20201237506

PATIENT
  Age: 82 Year
  Sex: Female

DRUGS (9)
  1. BI SIFROL [Concomitant]
     Active Substance: PRAMIPEXOLE
     Dosage: UNK
  2. AZILVA [Concomitant]
     Active Substance: AZILSARTAN KAMEDOXOMIL
     Dosage: UNK
     Dates: start: 20201217
  3. NOURIAST [Concomitant]
     Active Substance: ISTRADEFYLLINE
     Dosage: UNK
  4. SELEGILINE HYDROCHLORIDE. [Concomitant]
     Active Substance: SELEGILINE HYDROCHLORIDE
     Indication: PARKINSONISM
     Dosage: UNK
  5. NAUZELIN [Concomitant]
     Active Substance: DOMPERIDONE
     Dosage: UNK
  6. MENESIT [Concomitant]
     Active Substance: CARBIDOPA\LEVODOPA
     Dosage: UNK
  7. XARELTO [Suspect]
     Active Substance: RIVAROXABAN
     Indication: ATRIAL FIBRILLATION
     Route: 048
     Dates: end: 20201217
  8. VASOLAN [ISOXSUPRINE HYDROCHLORIDE] [Concomitant]
     Active Substance: ISOXSUPRINE HYDROCHLORIDE
     Dosage: UNK UNK, PRN
  9. TRERIEF [Concomitant]
     Active Substance: ZONISAMIDE
     Dosage: UNK

REACTIONS (1)
  - Cerebral haemorrhage [Unknown]
